FAERS Safety Report 25831988 (Version 1)
Quarter: 2025Q3

REPORT INFORMATION
  Report Type: Spontaneous
  Country: US (occurrence: None)
  Receive Date: 20250921
  Receipt Date: 20250921
  Transmission Date: 20251021
  Serious: Yes (Disabling)
  Sender: FDA-CTU
  Company Number: None

PATIENT
  Age: 67 Year
  Sex: Female
  Weight: 63 kg

DRUGS (1)
  1. ROSUVASTATIN CALCIUM [Suspect]
     Active Substance: ROSUVASTATIN CALCIUM
     Indication: Blood cholesterol increased
     Dosage: OTHER QUANTITY : 1 TABLET(S);?FREQUENCY : DAILY;?
     Route: 048
     Dates: start: 20180419, end: 20180424

REACTIONS (7)
  - Tinnitus [None]
  - Deafness [None]
  - Middle insomnia [None]
  - Nonspecific reaction [None]
  - Ear injury [None]
  - Emotional disorder [None]
  - General physical health deterioration [None]

NARRATIVE: CASE EVENT DATE: 20180419
